FAERS Safety Report 6411257-X (Version None)
Quarter: 2009Q4

REPORT INFORMATION
  Report Type: 
  Country: None (occurrence: None)
  Receive Date: 20091022
  Receipt Date: 20091012
  Transmission Date: 20100525
  Serious: Yes (Death)
  Sender: FDA-Public Use
  Company Number: AR-PFIZER INC-2009284960

PATIENT
  Age: 42 Year

DRUGS (3)
  1. METHYLPREDNISOLONE AND METHYLPREDNISOLONE ACETATE AND METHYLPREDNISOLO [Suspect]
     Dosage: 20 MG, DAILY
  2. TACROLIMUS [Suspect]
     Dosage: 0.5 MG, 2X/DAY
  3. AZATHIOPRINE [Suspect]
     Dosage: 75 MG, DAILY

REACTIONS (1)
  - STRONGYLOIDIASIS [None]
